FAERS Safety Report 7573286-2 (Version None)
Quarter: 2011Q2

REPORT INFORMATION
  Report Type: 
  Country: None (occurrence: None)
  Receive Date: 20110627
  Receipt Date: 20110614
  Transmission Date: 20111010
  Serious: Yes (Hospitalization)
  Sender: FDA-Public Use
  Company Number: PHFR2011GB03453

PATIENT
  Sex: Female

DRUGS (7)
  1. ATENOLOL [Concomitant]
     Indication: HYPERTENSION
     Dosage: UNK
     Route: 048
  2. ASCORBIC ACID [Concomitant]
     Indication: VITAMIN SUPPLEMENTATION
     Dosage: 50 MG, DAILY
     Route: 048
  3. OMEPRAZOLE [Concomitant]
     Indication: GASTRITIS
     Dosage: UNK
     Route: 048
  4. AMLODIPINE [Concomitant]
     Indication: HYPERTENSION
     Dosage: 10 MG, DAILY
     Route: 048
  5. CLOZAPINE [Suspect]
     Indication: SCHIZOPHRENIA
     Dosage: 250 MG, DAILY
     Route: 048
     Dates: start: 20021011
  6. SPIRONOLACTONE [Concomitant]
     Indication: HYPERTENSION
     Dosage: 50 MG, DAILY
     Route: 048
  7. IRON SULFATETHIAMIN COMPOUND TAB [Concomitant]
     Dosage: 600 MG, DAILY

REACTIONS (2)
  - URINARY TRACT INFECTION [None]
  - ESCHERICHIA SEPSIS [None]
